FAERS Safety Report 15515514 (Version 1)
Quarter: 2018Q4

REPORT INFORMATION
  Report Type: Other
  Country: IT (occurrence: IT)
  Receive Date: 20181017
  Receipt Date: 20181017
  Transmission Date: 20190205
  Serious: Yes (Other)
  Sender: FDA-Public Use
  Company Number: IT-APOTEX-2018AP022806

PATIENT
  Age: 59 Year
  Sex: Male

DRUGS (1)
  1. SILDENAFIL. [Suspect]
     Active Substance: SILDENAFIL
     Indication: ERECTILE DYSFUNCTION
     Dosage: 50 MG, PRN
     Route: 048

REACTIONS (1)
  - Spontaneous haematoma [Not Recovered/Not Resolved]

NARRATIVE: CASE EVENT DATE: 20180820
